FAERS Safety Report 12657761 (Version 13)
Quarter: 2020Q3

REPORT INFORMATION
  Report Type: Report from Study
  Country: US (occurrence: US)
  Receive Date: 20160816
  Receipt Date: 20200724
  Transmission Date: 20201102
  Serious: Yes (Hospitalization, Other)
  Sender: FDA-Public Use
  Company Number: US-ACTELION-A-NJ2016-140647

PATIENT
  Age: 73 Year
  Sex: Female
  Weight: 83.45 kg

DRUGS (4)
  1. TOPAMAX [Suspect]
     Active Substance: TOPIRAMATE
     Indication: PRODUCT USED FOR UNKNOWN INDICATION
     Route: 065
  2. LAMICTAL [Concomitant]
     Active Substance: LAMOTRIGINE
  3. OPSUMIT [Suspect]
     Active Substance: MACITENTAN
     Indication: PULMONARY ARTERIAL HYPERTENSION
     Dosage: 10 MG, QD
     Route: 048
     Dates: start: 20160708
  4. OPSUMIT [Suspect]
     Active Substance: MACITENTAN
     Dosage: 10 MG, QD
     Route: 048

REACTIONS (36)
  - Altered state of consciousness [Unknown]
  - Psychiatric evaluation [Unknown]
  - Arthritis [Unknown]
  - Balance disorder [Unknown]
  - Vascular device user [Unknown]
  - Dizziness [Unknown]
  - Seizure [Unknown]
  - Toxicity to various agents [Unknown]
  - Pruritus [Unknown]
  - Nasal congestion [Unknown]
  - Irritability [Unknown]
  - Fall [Unknown]
  - Arthralgia [Unknown]
  - Pain [Unknown]
  - Nasopharyngitis [Unknown]
  - Obstructive airways disorder [Unknown]
  - Headache [Unknown]
  - Peripheral swelling [Unknown]
  - Fatigue [Unknown]
  - Pain in extremity [Unknown]
  - Musculoskeletal stiffness [Unknown]
  - Arrhythmia [Recovering/Resolving]
  - Hypersomnia [Unknown]
  - Dyspnoea [Unknown]
  - Implant site pruritus [Unknown]
  - Blood pressure decreased [Unknown]
  - Nausea [Unknown]
  - Petit mal epilepsy [Unknown]
  - Condition aggravated [Unknown]
  - Cardiac pacemaker insertion [Recovering/Resolving]
  - Pneumonitis [Unknown]
  - Amnesia [Unknown]
  - Fluid retention [Unknown]
  - Cerebrovascular accident [Unknown]
  - Weight increased [Unknown]
  - Stress [Unknown]

NARRATIVE: CASE EVENT DATE: 201804
